FAERS Safety Report 7529683-4 (Version None)
Quarter: 2011Q2

REPORT INFORMATION
  Report Type: 
  Country: None (occurrence: None)
  Receive Date: 20110607
  Receipt Date: 20110601
  Transmission Date: 20111010
  Serious: Yes (Other)
  Sender: FDA-Public Use
  Company Number: A0929887A

PATIENT
  Age: 63 Year
  Sex: Female

DRUGS (15)
  1. LOSARTAN POTASSIUM [Concomitant]
  2. LIPITOR [Concomitant]
  3. PLAVIX [Concomitant]
  4. ALPRAZOLAM [Concomitant]
  5. LAMICTAL [Suspect]
     Indication: BIPOLAR DISORDER
     Dosage: 50MG PER DAY
     Route: 048
     Dates: start: 20110328, end: 20110530
  6. LEVOTHYROXINE SODIUM [Concomitant]
  7. ALLERGY MEDICATION [Concomitant]
  8. LANTUS [Concomitant]
  9. TOPAMAX [Concomitant]
  10. VITAMIN B-12 [Concomitant]
  11. VITAMIN TAB [Concomitant]
  12. ESTRADIOL [Concomitant]
  13. FLONASE [Concomitant]
  14. ELMIRON [Concomitant]
  15. HUMALOG [Concomitant]

REACTIONS (10)
  - HYPOAESTHESIA FACIAL [None]
  - HYPOAESTHESIA [None]
  - CEREBROVASCULAR ACCIDENT [None]
  - HYPOAESTHESIA ORAL [None]
  - DECREASED APPETITE [None]
  - BLOOD PRESSURE INCREASED [None]
  - HEADACHE [None]
  - PYREXIA [None]
  - SOMNOLENCE [None]
  - DRUG INEFFECTIVE [None]
